FAERS Safety Report 23475345 (Version 1)
Quarter: 2024Q1

REPORT INFORMATION
  Report Type: Report from Study
  Country: US (occurrence: US)
  Receive Date: 20240204
  Receipt Date: 20240204
  Transmission Date: 20240410
  Serious: No
  Sender: FDA-Public Use
  Company Number: US-EXELIXIS-CABO-23059598

PATIENT
  Age: 43 Year
  Sex: Male
  Weight: 68.59 kg

DRUGS (4)
  1. CABOMETYX [Suspect]
     Active Substance: CABOZANTINIB S-MALATE
     Indication: Renal cancer
     Dosage: 60 MG, QD
     Route: 048
     Dates: start: 20221215
  2. CABOMETYX [Suspect]
     Active Substance: CABOZANTINIB S-MALATE
     Dosage: 60 MG, QD
     Route: 048
  3. CABOMETYX [Suspect]
     Active Substance: CABOZANTINIB S-MALATE
     Dosage: 60 MG, QD
     Route: 048
  4. CABOMETYX [Suspect]
     Active Substance: CABOZANTINIB S-MALATE
     Dosage: 60 MG, QD
     Route: 048

REACTIONS (14)
  - Scab [Unknown]
  - Abdominal discomfort [Recovered/Resolved]
  - Pruritus [Unknown]
  - Nasopharyngitis [Unknown]
  - Ingrown hair [Unknown]
  - Blood pressure increased [Unknown]
  - Insomnia [Unknown]
  - Memory impairment [Unknown]
  - Headache [Unknown]
  - Fatigue [Unknown]
  - Dry skin [Unknown]
  - Muscle spasms [Unknown]
  - Testicular swelling [Unknown]
  - Product dose omission issue [Unknown]

NARRATIVE: CASE EVENT DATE: 20230101
